FAERS Safety Report 9922007 (Version 3)
Quarter: 2014Q1

REPORT INFORMATION
  Report Type: Spontaneous
  Country: US (occurrence: US)
  Receive Date: 20140225
  Receipt Date: 20140313
  Transmission Date: 20141002
  Serious: Yes (Hospitalization, Other)
  Sender: FDA-Public Use
  Company Number: US-BAXTER-2014BAX008971

PATIENT
  Sex: Male

DRUGS (2)
  1. DIANEAL LOW CALCIUM [Suspect]
     Indication: PERITONEAL DIALYSIS
     Route: 033
     Dates: start: 20121214
  2. B 12 [Concomitant]
     Indication: PRODUCT USED FOR UNKNOWN INDICATION

REACTIONS (6)
  - Unevaluable event [Recovering/Resolving]
  - Depression [Recovered/Resolved]
  - Arthropathy [Unknown]
  - Hypophagia [Recovered/Resolved]
  - Protein total decreased [Recovering/Resolving]
  - Hypotension [Recovered/Resolved]
